FAERS Safety Report 9320291 (Version 10)
Quarter: 2016Q1

REPORT INFORMATION
  Report Type: Report from Study
  Country: AU (occurrence: AU)
  Receive Date: 20130523
  Receipt Date: 20160308
  Transmission Date: 20160526
  Serious: Yes (Hospitalization, Other)
  Sender: FDA-Public Use
  Company Number: AU-ACTELION-A-CH2012-75715

PATIENT
  Age: 26 Year
  Sex: Female
  Weight: 65 kg

DRUGS (14)
  1. LAMOTRIGINE. [Concomitant]
     Active Substance: LAMOTRIGINE
     Dosage: 50 MG, BID
     Dates: start: 20040219
  2. TRACLEER [Suspect]
     Active Substance: BOSENTAN
     Indication: PULMONARY ARTERIAL HYPERTENSION
     Dosage: 125 MG, BID
     Route: 048
     Dates: start: 2002, end: 20121129
  3. VELETRI [Suspect]
     Active Substance: EPOPROSTENOL
     Indication: PULMONARY ARTERIAL HYPERTENSION
     Route: 042
  4. AMIODARONE [Suspect]
     Active Substance: AMIODARONE
     Dosage: UNK
     Route: 048
     Dates: start: 1997
  5. FLECAINIDE [Concomitant]
     Active Substance: FLECAINIDE
     Dosage: 50 MG, OD
  6. EPOPROSTENOL. [Concomitant]
     Active Substance: EPOPROSTENOL
     Dosage: 3000 ?G/ML, UNK
     Route: 042
  7. WARFARIN [Concomitant]
     Active Substance: WARFARIN
     Dosage: UNK
     Dates: start: 2000, end: 20130325
  8. TRACLEER [Suspect]
     Active Substance: BOSENTAN
     Dosage: 62.5 MG, BID
     Route: 048
     Dates: start: 20130228, end: 20130314
  9. SILDENAFIL. [Concomitant]
     Active Substance: SILDENAFIL
     Dosage: 20 MG, TID
  10. TRACLEER [Suspect]
     Active Substance: BOSENTAN
     Dosage: 62.5 MG, BID
     Route: 048
     Dates: start: 20020726
  11. AMIODARONE [Suspect]
     Active Substance: AMIODARONE
     Dosage: 400 MG, OD
     Route: 048
     Dates: start: 20001231
  12. AMIODARONE [Suspect]
     Active Substance: AMIODARONE
     Indication: PRODUCT USED FOR UNKNOWN INDICATION
     Dosage: 200 MG, QD
     Route: 048
     Dates: start: 2002, end: 20130318
  13. FOLIC ACID. [Concomitant]
     Active Substance: FOLIC ACID
     Dosage: 500 ?G, UNK
  14. THYROXINE [Concomitant]
     Active Substance: LEVOTHYROXINE
     Dosage: 50 ?G, UNK

REACTIONS (22)
  - Bilirubin conjugated increased [Recovering/Resolving]
  - Blood bilirubin increased [Recovering/Resolving]
  - Hypophagia [Unknown]
  - Autoimmune hepatitis [Unknown]
  - Staphylococcal skin infection [Unknown]
  - Abdominal pain [Unknown]
  - Alanine aminotransferase increased [Recovering/Resolving]
  - Drug-induced liver injury [Recovering/Resolving]
  - Aspartate aminotransferase increased [Recovering/Resolving]
  - Blood lactate dehydrogenase increased [Recovering/Resolving]
  - Gamma-glutamyltransferase increased [Recovering/Resolving]
  - Biopsy liver abnormal [Unknown]
  - Blood alkaline phosphatase increased [Recovering/Resolving]
  - Pruritus [Unknown]
  - Acute hepatic failure [Recovering/Resolving]
  - Jaundice [Unknown]
  - Ascites [Recovering/Resolving]
  - Hepatitis cholestatic [Recovering/Resolving]
  - Malaise [Unknown]
  - Nausea [Unknown]
  - Chromaturia [Unknown]
  - Vomiting [Unknown]

NARRATIVE: CASE EVENT DATE: 20121119
